FAERS Safety Report 6145087-3 (Version None)
Quarter: 2009Q2

REPORT INFORMATION
  Report Type: 
  Country: None (occurrence: None)
  Receive Date: 20090406
  Receipt Date: 20081217
  Transmission Date: 20091009
  Serious: No
  Sender: FDA-Public Use
  Company Number: A0760736A

PATIENT
  Age: 54 Year
  Sex: Female

DRUGS (3)
  1. ADVAIR HFA [Suspect]
     Indication: ASTHMA
     Dosage: 1PUFF TWICE PER DAY
     Route: 055
     Dates: start: 20081205
  2. PROTONIX [Concomitant]
  3. PROVENTIL [Concomitant]

REACTIONS (1)
  - DRUG INEFFECTIVE [None]
